FAERS Safety Report 15238622 (Version 1)
Quarter: 2018Q3

REPORT INFORMATION
  Report Type: Spontaneous
  Country: US (occurrence: US)
  Receive Date: 20180803
  Receipt Date: 20180803
  Transmission Date: 20181010
  Serious: No
  Sender: FDA-Public Use
  Company Number: US-BAUSCH-BL-2018-020676

PATIENT
  Sex: Male

DRUGS (2)
  1. UCERIS [Suspect]
     Active Substance: BUDESONIDE
     Indication: COLITIS
     Dosage: STARTED 2 TO 3 MONTHS AGO
     Route: 048
     Dates: start: 2018
  2. UCERIS [Suspect]
     Active Substance: BUDESONIDE
     Indication: OFF LABEL USE

REACTIONS (2)
  - Rash macular [Not Recovered/Not Resolved]
  - Therapeutic product effective for unapproved indication [Not Recovered/Not Resolved]

NARRATIVE: CASE EVENT DATE: 2018
